FAERS Safety Report 9554725 (Version 2)
Quarter: 2013Q3

REPORT INFORMATION
  Report Type: Spontaneous
  Country: US (occurrence: US)
  Receive Date: 20130926
  Receipt Date: 20130926
  Transmission Date: 20140515
  Serious: Yes (Disabling, Other)
  Sender: FDA-Public Use
  Company Number: US-AMGEN-USASP2013065041

PATIENT
  Age: 64 Year
  Sex: Male
  Weight: 81.63 kg

DRUGS (3)
  1. ENBREL [Suspect]
     Indication: PSORIASIS
     Dosage: 50 MG/ML, 2 TIMES/WK
     Route: 058
     Dates: start: 20130904, end: 20130914
  2. SIMVASTIN [Concomitant]
     Indication: HYPERLIPIDAEMIA
     Dosage: 20 MG, QD
     Route: 048
     Dates: start: 20080516
  3. TACLONEX [Concomitant]
     Indication: PSORIASIS
     Dosage: UNK, QD
     Route: 061
     Dates: start: 20130503

REACTIONS (2)
  - Diplopia [Not Recovered/Not Resolved]
  - VIth nerve paralysis [Not Recovered/Not Resolved]
